FAERS Safety Report 8860973 (Version 3)
Quarter: 2013Q1

REPORT INFORMATION
  Report Type: Spontaneous
  Country: US (occurrence: US)
  Receive Date: 20121025
  Receipt Date: 20130121
  Transmission Date: 20140127
  Serious: No
  Sender: FDA-Public Use
  Company Number: US-009507513-1210USA010522

PATIENT
  Age: 21 Year
  Sex: Female
  Weight: 56.24 kg

DRUGS (1)
  1. IMPLANON [Suspect]
     Indication: CONTRACEPTION
     Dosage: 1 DF, UP TO 3 YEARS
     Dates: start: 20110207

REACTIONS (4)
  - Pain in extremity [Unknown]
  - Mobility decreased [Unknown]
  - Device breakage [Unknown]
  - Product quality issue [Unknown]
